FAERS Safety Report 22128457 (Version 2)
Quarter: 2024Q2

REPORT INFORMATION
  Report Type: Report from Study
  Country: AT (occurrence: AT)
  Receive Date: 20230323
  Receipt Date: 20240619
  Transmission Date: 20240716
  Serious: Yes (Hospitalization)
  Sender: FDA-Public Use
  Company Number: AT-ABBVIE-4698410

PATIENT
  Sex: Female

DRUGS (4)
  1. HUMIRA [Suspect]
     Active Substance: ADALIMUMAB
     Indication: Rheumatoid arthritis
     Route: 058
     Dates: start: 2023
  2. HUMIRA [Suspect]
     Active Substance: ADALIMUMAB
     Indication: Juvenile idiopathic arthritis
     Route: 058
     Dates: start: 2019, end: 2023
  3. SEROQUEL [Concomitant]
     Active Substance: QUETIAPINE FUMARATE
     Indication: Product used for unknown indication
  4. Novalgin [Concomitant]
     Indication: Product used for unknown indication
     Dosage: FREQUENCY TEXT WAS AS REQUIRED

REACTIONS (4)
  - Benign abdominal neoplasm [Recovered/Resolved]
  - Coronavirus infection [Recovered/Resolved]
  - Sinus disorder [Recovered/Resolved]
  - Salpingo-oophorectomy [Recovered/Resolved]

NARRATIVE: CASE EVENT DATE: 20230207
